FAERS Safety Report 25588627 (Version 2)
Quarter: 2025Q3

REPORT INFORMATION
  Report Type: Report from Study
  Country: EU (occurrence: EU)
  Receive Date: 20250722
  Receipt Date: 20250816
  Transmission Date: 20251021
  Serious: Yes (Death, Other)
  Sender: UNITED THERAPEUTICS
  Company Number: EU-UNITED THERAPEUTICS-UNT-2025-024789

PATIENT

DRUGS (1)
  1. TREPROSTINIL SODIUM [Suspect]
     Active Substance: TREPROSTINIL SODIUM
     Indication: Product used for unknown indication

REACTIONS (2)
  - Appendix cancer metastatic [Fatal]
  - Adenocarcinoma of appendix [Fatal]
